FAERS Safety Report 8242009 (Version 2)
Quarter: 2015Q4

REPORT INFORMATION
  Report Type: Report from Study
  Country: AT (occurrence: AT)
  Receive Date: 20111111
  Receipt Date: 20151027
  Transmission Date: 20160305
  Serious: Yes (Hospitalization)
  Sender: FDA-Public Use
  Company Number: AT-ROCHE-1009295

PATIENT
  Age: 61 Year
  Sex: Male

DRUGS (4)
  1. BEVACIZUMAB [Suspect]
     Active Substance: BEVACIZUMAB
     Indication: BRAIN NEOPLASM MALIGNANT
     Route: 042
     Dates: start: 20100423, end: 20100609
  2. IRINOTECAN [Suspect]
     Active Substance: IRINOTECAN
     Indication: BRAIN NEOPLASM MALIGNANT
     Route: 042
     Dates: start: 20100423, end: 20100609
  3. FORTECORTIN [Concomitant]
     Active Substance: DEXAMETHASONE
     Route: 065
  4. KEPPRA [Concomitant]
     Active Substance: LEVETIRACETAM
     Route: 065

REACTIONS (1)
  - Lumbar vertebral fracture [Recovered/Resolved]

NARRATIVE: CASE EVENT DATE: 20100609
